FAERS Safety Report 20356742 (Version 1)
Quarter: 2022Q1

REPORT INFORMATION
  Report Type: Spontaneous
  Country: US (occurrence: None)
  Receive Date: 20220119
  Receipt Date: 20220119
  Transmission Date: 20220423
  Serious: Yes (unspecified)
  Sender: FDA-Public Use
  Company Number: None

PATIENT
  Age: 26 Year
  Sex: Male
  Weight: 90.6 kg

DRUGS (7)
  1. IRINOTECAN [Suspect]
     Active Substance: IRINOTECAN
     Indication: Colon cancer
     Dosage: OTHER FREQUENCY : EVERY 14 DAYS;?
     Route: 042
     Dates: start: 20220111
  2. PALONOSETRON [Concomitant]
     Active Substance: PALONOSETRON
     Dates: start: 20220111
  3. DEXAMETHASONE [Concomitant]
     Active Substance: DEXAMETHASONE
     Dates: start: 20220111
  4. ATROPINE [Concomitant]
     Active Substance: ATROPINE
     Dates: start: 20220111
  5. OXALIPLATIN [Concomitant]
     Active Substance: OXALIPLATIN
     Dates: start: 20220111
  6. LEUCOVORIN [Concomitant]
     Active Substance: LEUCOVORIN
     Dates: start: 20220111
  7. FLUOROURACIL [Concomitant]
     Active Substance: FLUOROURACIL
     Dates: start: 20220111

REACTIONS (6)
  - Rhinorrhoea [None]
  - Hyperhidrosis [None]
  - Muscle twitching [None]
  - Therapy change [None]
  - Tremor [None]
  - Infusion related reaction [None]

NARRATIVE: CASE EVENT DATE: 20220111
